FAERS Safety Report 14436517 (Version 1)
Quarter: 2018Q1

REPORT INFORMATION
  Report Type: Spontaneous
  Country: US (occurrence: US)
  Receive Date: 20180125
  Receipt Date: 20180125
  Transmission Date: 20180509
  Serious: No
  Sender: FDA-Public Use
  Company Number: US-UNITED THERAPEUTICS-UNT-2017-010137

PATIENT
  Sex: Female

DRUGS (2)
  1. ESBRIET [Suspect]
     Active Substance: PIRFENIDONE
     Indication: PRODUCT USED FOR UNKNOWN INDICATION
     Dosage: 3 CAPSULES, TWICE DAILY
     Route: 065
  2. TYVASO [Suspect]
     Active Substance: TREPROSTINIL
     Indication: PULMONARY ARTERIAL HYPERTENSION
     Dosage: 72 ?G, QID
     Dates: start: 20150608

REACTIONS (8)
  - Weight fluctuation [Unknown]
  - Nausea [Unknown]
  - Diarrhoea [Unknown]
  - Off label use [Unknown]
  - Blood pressure decreased [Unknown]
  - Peripheral swelling [Unknown]
  - Fluid retention [Unknown]
  - Dyspnoea [Not Recovered/Not Resolved]
